FAERS Safety Report 22615649 (Version 1)
Quarter: 2023Q2

REPORT INFORMATION
  Report Type: Other
  Country: IN (occurrence: None)
  Receive Date: 20230619
  Receipt Date: 20230619
  Transmission Date: 20230722
  Serious: Yes (Death)
  Sender: FDA-Public Use
  Company Number: IN-ROCHE-3369769

PATIENT
  Age: 67 Year
  Sex: Male

DRUGS (1)
  1. TECENTRIQ [Suspect]
     Active Substance: ATEZOLIZUMAB
     Indication: Lung cancer metastatic
     Route: 041
     Dates: start: 20230213

REACTIONS (5)
  - Pneumonia [Fatal]
  - Osteomyelitis [Fatal]
  - Hepatic infection [Fatal]
  - Metastases to central nervous system [Fatal]
  - Seizure [Fatal]
